FAERS Safety Report 6260794-X (Version None)
Quarter: 2009Q3

REPORT INFORMATION
  Report Type: 
  Country: None (occurrence: None)
  Receive Date: 20090706
  Receipt Date: 20090619
  Transmission Date: 20100115
  Serious: Yes (Death)
  Sender: FDA-Public Use
  Company Number: 2009AL001270

PATIENT
  Age: 68 Year
  Sex: Female

DRUGS (8)
  1. DIGOXIN [Suspect]
     Dosage: 0.25MG, DAILY, PO
     Route: 048
  2. LEXAPRO [Concomitant]
  3. LASIX [Concomitant]
  4. GLUCOTROL [Concomitant]
  5. LOTENSIN [Concomitant]
  6. PROVENTIL-HFA [Concomitant]
  7. ATROVENT [Concomitant]
  8. LOVENOX [Concomitant]

REACTIONS (22)
  - ANXIETY [None]
  - ARTERIOSCLEROSIS [None]
  - BLOOD GLUCOSE DECREASED [None]
  - CARDIAC ARREST [None]
  - CARDIOACTIVE DRUG LEVEL DECREASED [None]
  - CEREBROVASCULAR ACCIDENT [None]
  - CONVULSION [None]
  - DEHYDRATION [None]
  - DIARRHOEA [None]
  - ECONOMIC PROBLEM [None]
  - EMOTIONAL DISORDER [None]
  - FAMILY STRESS [None]
  - FEAR [None]
  - MENTAL DISORDER [None]
  - MULTIPLE INJURIES [None]
  - NAUSEA [None]
  - PAIN [None]
  - PULMONARY EMBOLISM [None]
  - RESPIRATORY FAILURE [None]
  - SOCIAL PROBLEM [None]
  - SYNCOPE [None]
  - VOMITING [None]
